FAERS Safety Report 18500699 (Version 1)
Quarter: 2020Q4

REPORT INFORMATION
  Report Type: Spontaneous
  Country: US (occurrence: US)
  Receive Date: 20201113
  Receipt Date: 20201113
  Transmission Date: 20210114
  Serious: Yes (Hospitalization, Other)
  Sender: FDA-Public Use
  Company Number: None

PATIENT
  Age: 73 Year
  Sex: Male
  Weight: 107 kg

DRUGS (4)
  1. VANCOMYCIN [Concomitant]
     Active Substance: VANCOMYCIN
     Dates: start: 20201112
  2. ZINC SULFATE. [Concomitant]
     Active Substance: ZINC SULFATE
     Dates: start: 20201111
  3. MELATONIN [Concomitant]
     Active Substance: MELATONIN
     Dates: start: 20201111
  4. REMDESIVIR. [Suspect]
     Active Substance: REMDESIVIR
     Indication: COVID-19
     Dosage: ?          OTHER FREQUENCY:ONE TIME LOAD;?
     Route: 041
     Dates: start: 20201112, end: 20201112

REACTIONS (2)
  - Heart rate irregular [None]
  - Bradycardia [None]

NARRATIVE: CASE EVENT DATE: 20201113
